FAERS Safety Report 8924687 (Version 1)
Quarter: 2012Q4

REPORT INFORMATION
  Report Type: 
  Country: GB (occurrence: GB)
  Receive Date: 20121126
  Receipt Date: 20121126
  Transmission Date: 20130627
  Serious: Yes (Hospitalization, Other)
  Sender: FDA-Public Use
  Company Number: GB-PFIZER INC-2012293770

PATIENT
  Age: 69 Year
  Sex: Male
  Weight: 65 kg

DRUGS (13)
  1. GENOTROPIN [Suspect]
     Indication: GROWTH HORMONE DEFICIENCY
     Dosage: 0.27 mg, 1x/day, 7 injection/week
     Route: 058
     Dates: start: 19990222
  2. LEVOTHYROXINE [Concomitant]
     Indication: THYROID DISORDER
     Dosage: UNK
  3. LEVOTHYROXINE [Concomitant]
     Indication: PRIMARY HYPOTHYROIDISM
  4. DESMOPRESSIN [Concomitant]
     Indication: ADH DECREASED
     Dosage: UNK
  5. CO-DYDRAMOL [Concomitant]
     Dosage: UNK
  6. TESTOSTERONE [Concomitant]
     Indication: LUTEINIZING HORMONE DEFICIENCY
     Dosage: UNK
     Dates: start: 19980215
  7. TESTOSTERONE [Concomitant]
     Indication: FOLLICLE-STIMULATING HORMONE DEFICIENCY
  8. TESTOSTERONE [Concomitant]
     Indication: TESTICULAR HYPOGONADISM
  9. ASPIRIN [Concomitant]
     Indication: HYPERTENSION
     Dosage: UNK
     Dates: start: 20000713
  10. ATORVASTATIN [Concomitant]
     Indication: HYPERCHOLESTEROLEMIA
     Dosage: UNK
     Dates: start: 20000914
  11. HYDROCORTISONE [Concomitant]
     Indication: ACTH DECREASED
     Dosage: UNK
     Dates: start: 19981215
  12. ATENOLOL [Concomitant]
     Indication: HYPERTENSION
     Dosage: UNK
     Dates: start: 20000713
  13. RAMIPRIL [Concomitant]
     Indication: HYPERTENSION
     Dosage: UNK
     Dates: start: 20010907

REACTIONS (1)
  - Femur fracture [Unknown]
